FAERS Safety Report 7356634-8 (Version None)
Quarter: 2011Q1

REPORT INFORMATION
  Report Type: 
  Country: None (occurrence: None)
  Receive Date: 20110316
  Receipt Date: 20110304
  Transmission Date: 20110831
  Serious: Yes (Hospitalization, Other)
  Sender: FDA-Public Use
  Company Number: PHHO2011CN03228

PATIENT
  Sex: Male
  Weight: 75 kg

DRUGS (13)
  1. DICLOFENAC SODIUM [Suspect]
     Dosage: 25 MG, QD
     Route: 048
     Dates: start: 20110128, end: 20110207
  2. FUROSEMIDE [Suspect]
     Indication: CARDIAC FAILURE
     Dosage: 20 MG, QD
     Route: 048
     Dates: start: 20071031, end: 20110219
  3. COMPARATOR ENALAPRIL [Suspect]
     Indication: CARDIAC FAILURE
     Dosage: 5 MG, BID
     Route: 048
     Dates: start: 20101224, end: 20110111
  4. ACETYLSALICYLIC ACID [Concomitant]
  5. BLINDED ENALAPRIL [Suspect]
     Indication: CARDIAC FAILURE
     Dosage: CODE NOT BROKEN
     Route: 048
     Dates: start: 20110215
  6. ALISKIREN [Suspect]
     Indication: CARDIAC FAILURE
     Dosage: 10 MG, BID
     Route: 048
     Dates: start: 20110111, end: 20110215
  7. DIGOXIN [Concomitant]
  8. BLINDED NO TREATMENT RECEIVED [Suspect]
     Indication: CARDIAC FAILURE
     Dosage: CODE NOT BROKEN
     Route: 048
     Dates: start: 20110215
  9. FOSINOPRIL SODIUM [Concomitant]
  10. COMPARATOR ENALAPRIL [Suspect]
     Dosage: 10 MG, BID
     Route: 048
     Dates: start: 20110111, end: 20110215
  11. METOPROLOL SUCCINATE [Concomitant]
  12. BLINDED ALISKIREN [Suspect]
     Indication: CARDIAC FAILURE
     Dosage: CODE NOT BROKEN
     Route: 048
     Dates: start: 20110215
  13. INSULIN [Suspect]

REACTIONS (4)
  - LUNG NEOPLASM MALIGNANT [None]
  - DIABETIC NEPHROPATHY [None]
  - LIVER DISORDER [None]
  - GOUT [None]
